FAERS Safety Report 8778046 (Version 3)
Quarter: 2012Q4

REPORT INFORMATION
  Report Type: 
  Country: US (occurrence: US)
  Receive Date: 20120911
  Receipt Date: 20121123
  Transmission Date: 20130627
  Serious: No
  Sender: FDA-Public Use
  Company Number: US-PFIZER INC-2012220059

PATIENT
  Age: 65 Year
  Sex: Male

DRUGS (1)
  1. INLYTA [Suspect]
     Indication: RENAL CELL CARCINOMA WITH SARCOMATOID FEATURES
     Dosage: 5mg twice daily Q 12 hr, every 28 days x 12
     Route: 048
     Dates: start: 20120826, end: 20120904

REACTIONS (2)
  - Proteinuria [Recovered/Resolved]
  - Hypertension [Recovered/Resolved]
